FAERS Safety Report 10761383 (Version 4)
Quarter: 2015Q2

REPORT INFORMATION
  Report Type: Report from Study
  Country: US (occurrence: IL)
  Receive Date: 20150204
  Receipt Date: 20150408
  Transmission Date: 20150821
  Serious: Yes (Death)
  Sender: FDA-Public Use
  Company Number: US-SA-2015SA011753

PATIENT
  Age: 74 Year
  Sex: Female
  Weight: 58 kg

DRUGS (3)
  1. CLOLAR [Suspect]
     Active Substance: CLOFARABINE
     Indication: ACUTE MYELOID LEUKAEMIA
     Dosage: TOTAL DOSE OF CLOFARABINE ADMINISTERED DURING THIS COURSE WAS 240 MG
     Route: 065
     Dates: start: 20150108, end: 20150112
  2. VABEN [Concomitant]
     Active Substance: OXAZEPAM
     Route: 048
  3. CIPRALEX [Concomitant]
     Active Substance: ESCITALOPRAM OXALATE
     Route: 048

REACTIONS (1)
  - Brain herniation [Fatal]

NARRATIVE: CASE EVENT DATE: 20150120
